FAERS Safety Report 13643301 (Version 1)
Quarter: 2017Q2

REPORT INFORMATION
  Report Type: Spontaneous
  Country: FR (occurrence: FR)
  Receive Date: 20170612
  Receipt Date: 20170612
  Transmission Date: 20170830
  Serious: Yes (Death, Life-Threatening, Hospitalization, Other)
  Sender: FDA-Public Use
  Company Number: FR-BAYER-2017-110101

PATIENT
  Age: 29 Year

DRUGS (9)
  1. CEFPODOXIME PROXETIL. [Concomitant]
     Active Substance: CEFPODOXIME PROXETIL
     Indication: PAIN
  2. KETOPROFEN (SYSTEMIC FORMULATION) [Suspect]
     Active Substance: KETOPROFEN
     Indication: SINUSITIS
  3. IBUPROFEN. [Suspect]
     Active Substance: IBUPROFEN
     Indication: SINUSITIS
  4. CEFPODOXIME PROXETIL. [Concomitant]
     Active Substance: CEFPODOXIME PROXETIL
     Indication: SINUSITIS
  5. CORTICOSTEROID NOS [Concomitant]
     Active Substance: CORTICOSTEROID NOS
  6. IBUPROFEN. [Suspect]
     Active Substance: IBUPROFEN
     Indication: PAIN
  7. PARACETAMOL [Suspect]
     Active Substance: ACETAMINOPHEN
     Indication: SINUSITIS
  8. KETOPROFEN (SYSTEMIC FORMULATION) [Suspect]
     Active Substance: KETOPROFEN
     Indication: SINUSITIS
  9. ZOLMITRIPTAN. [Concomitant]
     Active Substance: ZOLMITRIPTAN

REACTIONS (12)
  - Vertigo [Unknown]
  - Condition aggravated [None]
  - Meningoencephalitis bacterial [Unknown]
  - Drug ineffective [None]
  - Coma [None]
  - Photophobia [Unknown]
  - Nystagmus [None]
  - Aphasia [None]
  - Hemianopia homonymous [None]
  - Gaze palsy [None]
  - Hemiplegia [None]
  - Brain death [Fatal]
